FAERS Safety Report 24465947 (Version 1)
Quarter: 2024Q4

REPORT INFORMATION
  Report Type: Report from Study
  Country: US (occurrence: US)
  Receive Date: 20241018
  Receipt Date: 20241018
  Transmission Date: 20250115
  Serious: No
  Sender: ROCHE
  Company Number: US-ROCHE-3538328

PATIENT
  Age: 60 Year
  Sex: Female
  Weight: 104.33 kg

DRUGS (2)
  1. XOLAIR [Suspect]
     Active Substance: OMALIZUMAB
     Indication: Idiopathic urticaria
     Dosage: 30 DAYS SUPPLY
     Route: 058
     Dates: start: 20240313
  2. XOLAIR [Suspect]
     Active Substance: OMALIZUMAB

REACTIONS (3)
  - Peripheral swelling [Recovered/Resolved]
  - Erythema [Recovering/Resolving]
  - Sunburn [Unknown]
